FAERS Safety Report 21995286 (Version 1)
Quarter: 2023Q1

REPORT INFORMATION
  Report Type: Spontaneous
  Country: US (occurrence: None)
  Receive Date: 20230213
  Receipt Date: 20230213
  Transmission Date: 20230417
  Serious: Yes (Death)
  Sender: FDA-Public Use
  Company Number: None

PATIENT
  Age: 57 Year
  Sex: Female

DRUGS (23)
  1. TADALAFIL [Suspect]
     Active Substance: TADALAFIL
     Indication: Heritable pulmonary arterial hypertension
     Dosage: 20MG QD ORAL
     Route: 048
     Dates: start: 20201204, end: 20230111
  2. TADALAFIL [Suspect]
     Active Substance: TADALAFIL
     Indication: Pulmonary arterial hypertension
  3. OFEV [Suspect]
     Active Substance: NINTEDANIB
  4. DIGOXIN [Concomitant]
     Active Substance: DIGOXIN
  5. TORSEMIDE [Concomitant]
     Active Substance: TORSEMIDE
  6. ACETAZOLAMIDE [Concomitant]
     Active Substance: ACETAZOLAMIDE
  7. VITAMIN D3 [Concomitant]
     Active Substance: CHOLECALCIFEROL
  8. VITAMIN D2 [Concomitant]
     Active Substance: ERGOCALCIFEROL
  9. ALBUTEROL [Concomitant]
     Active Substance: ALBUTEROL
  10. MOTRIN [Concomitant]
     Active Substance: IBUPROFEN
  11. ALBUTEROL SULFATE [Concomitant]
     Active Substance: ALBUTEROL SULFATE
  12. CETIRIZINE [Concomitant]
     Active Substance: CETIRIZINE HYDROCHLORIDE
  13. TYLENOL [Concomitant]
     Active Substance: ACETAMINOPHEN
  14. HUMULIN N [Concomitant]
     Active Substance: INSULIN HUMAN
  15. TORSEMIDE [Concomitant]
     Active Substance: TORSEMIDE
  16. K-TAB [Concomitant]
     Active Substance: POTASSIUM CHLORIDE
  17. KEPPRA [Concomitant]
     Active Substance: LEVETIRACETAM
  18. Alvesco HFA [Concomitant]
  19. OMEPRAZOLE [Concomitant]
     Active Substance: OMEPRAZOLE
  20. Oxygen intranasal [Concomitant]
  21. Vit B-12 [Concomitant]
  22. ASPIRIN [Concomitant]
     Active Substance: ASPIRIN
  23. EMERGEN-C [Concomitant]
     Active Substance: VITAMINS

REACTIONS (8)
  - COVID-19 [None]
  - Pneumonia [None]
  - Leukocytosis [None]
  - Brain natriuretic peptide increased [None]
  - Troponin increased [None]
  - Cardio-respiratory arrest [None]
  - Respiratory failure [None]
  - Multimorbidity [None]

NARRATIVE: CASE EVENT DATE: 20230111
